FAERS Safety Report 11265588 (Version 1)
Quarter: 2015Q3

REPORT INFORMATION
  Report Type: Spontaneous
  Country: US (occurrence: None)
  Receive Date: 20150710
  Receipt Date: 20150710
  Transmission Date: 20151125
  Serious: Yes (Hospitalization)
  Sender: FDA-Public Use
  Company Number: None

PATIENT
  Age: 81 Year
  Sex: Female

DRUGS (14)
  1. CARVEDILOL. [Concomitant]
     Active Substance: CARVEDILOL
  2. RIVAROXABAN 15MG [Suspect]
     Active Substance: RIVAROXABAN
     Indication: DEEP VEIN THROMBOSIS
     Route: 048
  3. SENNA [Concomitant]
     Active Substance: SENNA LEAF\SENNOSIDES\SENNOSIDES A AND B
  4. LISINOPRIL. [Concomitant]
     Active Substance: LISINOPRIL
  5. BUMETAMIDE [Concomitant]
  6. ALLOPURINOL. [Concomitant]
     Active Substance: ALLOPURINOL
  7. ASA [Concomitant]
     Active Substance: ASPIRIN
  8. HEPARIN DROP [Concomitant]
  9. WARFARIN [Suspect]
     Active Substance: WARFARIN
     Indication: DEEP VEIN THROMBOSIS
     Route: 048
  10. CINACALCET [Concomitant]
     Active Substance: CINACALCET
  11. SERTRALINE [Concomitant]
     Active Substance: SERTRALINE HYDROCHLORIDE
  12. ATORVASTATIN [Concomitant]
     Active Substance: ATORVASTATIN
  13. ENOXAPARIN [Concomitant]
     Active Substance: ENOXAPARIN
  14. SEPTRA DS [Concomitant]
     Active Substance: SULFAMETHOXAZOLE\TRIMETHOPRIM

REACTIONS (7)
  - Deep vein thrombosis [None]
  - Pneumonia [None]
  - Urinary tract infection [None]
  - Endocarditis [None]
  - Haematemesis [None]
  - Contusion [None]
  - Haemorrhage [None]

NARRATIVE: CASE EVENT DATE: 20150609
